FAERS Safety Report 8773558 (Version 1)
Quarter: 2012Q4

REPORT INFORMATION
  Report Type: 
  Country: US (occurrence: US)
  Receive Date: 20120907
  Receipt Date: 20120907
  Transmission Date: 20130627
  Serious: Yes (Other)
  Sender: FDA-Public Use
  Company Number: US-PFIZER INC-2012219982

PATIENT
  Age: 56 Year
  Sex: Male
  Weight: 63.49 kg

DRUGS (3)
  1. LYRICA [Suspect]
     Indication: NEUROPATHY PERIPHERAL
     Dosage: 25mg in morning, 25mg in middle of day, 100mg at night
  2. METHADONE [Suspect]
     Indication: NEUROPATHY PERIPHERAL
     Dosage: 10 mg, 2x/day
  3. KALETRA [Concomitant]
     Indication: HIV INFECTION
     Dosage: 400 mg, 2x/day

REACTIONS (1)
  - Renal disorder [Unknown]
